FAERS Safety Report 4683601-5 (Version None)
Quarter: 2005Q2

REPORT INFORMATION
  Report Type: 
  Country: None (occurrence: None)
  Receive Date: 20050602
  Receipt Date: 20050314
  Transmission Date: 20051028
  Serious: No
  Sender: FDA-Public Use
  Company Number: 200510488BWH

PATIENT
  Age: 85 Year
  Sex: Male

DRUGS (8)
  1. LEVITRA [Suspect]
     Dosage: 10 MG, TOTAL DAILY, ORAL
     Route: 048
  2. LEVITRA [Suspect]
     Dosage: ORAL
     Route: 048
  3. LIPITOR [Concomitant]
  4. NORVASC [Concomitant]
  5. AVANDIA [Concomitant]
  6. ATACAND [Concomitant]
  7. VYTORIN [Concomitant]
  8. TOPROL-XL [Concomitant]

REACTIONS (1)
  - NO ADVERSE DRUG EFFECT [None]
